FAERS Safety Report 7865578-4 (Version None)
Quarter: 2011Q4

REPORT INFORMATION
  Report Type: 
  Country: None (occurrence: None)
  Receive Date: 20111028
  Receipt Date: 20110119
  Transmission Date: 20120403
  Serious: No
  Sender: FDA-Public Use
  Company Number: US-GLAXOSMITHKLINE-A0907379A

PATIENT
  Age: 64 Year
  Sex: Male

DRUGS (3)
  1. ATENOLOL [Concomitant]
  2. LOTREL [Concomitant]
  3. ADVAIR DISKUS 100/50 [Suspect]
     Indication: DYSPNOEA
     Dosage: 1PUFF TWICE PER DAY
     Route: 055
     Dates: start: 20110101

REACTIONS (4)
  - VISUAL IMPAIRMENT [None]
  - HEART RATE INCREASED [None]
  - DRY THROAT [None]
  - NAUSEA [None]
